FAERS Safety Report 13540682 (Version 2)
Quarter: 2017Q2

REPORT INFORMATION
  Report Type: Spontaneous
  Country: RU (occurrence: RU)
  Receive Date: 20170512
  Receipt Date: 20170518
  Transmission Date: 20170830
  Serious: Yes (Hospitalization, Other)
  Sender: FDA-Public Use
  Company Number: RU-ASTRAZENECA-2017SE49394

PATIENT
  Age: 91 Year
  Sex: Female
  Weight: 60 kg

DRUGS (3)
  1. CARDIOMAGNYL [Concomitant]
     Active Substance: ASPIRIN\MAGNESIUM HYDROXIDE
  2. BRILINTA [Suspect]
     Active Substance: TICAGRELOR
     Indication: MYOCARDIAL INFARCTION
     Route: 048
     Dates: start: 201607, end: 201702
  3. VEROSPIRON [Concomitant]
     Active Substance: SPIRONOLACTONE

REACTIONS (4)
  - Haemoglobin decreased [Recovered/Resolved]
  - Duodenal ulcer [Recovered/Resolved]
  - Traumatic haemorrhage [Unknown]
  - Pain [Unknown]

NARRATIVE: CASE EVENT DATE: 201702
